FAERS Safety Report 5233787-9 (Version None)
Quarter: 2007Q1

REPORT INFORMATION
  Report Type: 
  Country: None (occurrence: None)
  Receive Date: 20061208
  Receipt Date: 20060714
  Transmission Date: 20070707
  Serious: Yes (Other)
  Sender: FDA-Public Use
  Company Number: 2006UW14533

PATIENT
  Age: 46 Year
  Sex: Female
  Weight: 55.338 kg

DRUGS (3)
  1. CRESTOR [Suspect]
     Indication: HYPERCHOLESTEROLAEMIA
     Dosage: 10 MG QOD PO
     Route: 048
     Dates: start: 20060601
  2. WELLBUTRIN [Concomitant]
  3. IMIPRAMINE [Concomitant]

REACTIONS (2)
  - BLOOD TRIGLYCERIDES INCREASED [None]
  - DIZZINESS [None]
